FAERS Safety Report 25089003 (Version 1)
Quarter: 2025Q1

REPORT INFORMATION
  Report Type: Spontaneous
  Country: US (occurrence: US)
  Receive Date: 20250318
  Receipt Date: 20250318
  Transmission Date: 20250409
  Serious: Yes (Hospitalization)
  Sender: PFIZER
  Company Number: US-PFIZER INC-202500057990

PATIENT
  Age: 66 Year
  Sex: Female

DRUGS (2)
  1. IBRANCE [Suspect]
     Active Substance: PALBOCICLIB
  2. ITOVEBI [Suspect]
     Active Substance: INAVOLISIB

REACTIONS (5)
  - Blood glucose increased [Unknown]
  - Dry mouth [Unknown]
  - Weight decreased [Unknown]
  - Hypophagia [Unknown]
  - Stomatitis [Unknown]

NARRATIVE: CASE EVENT DATE: 20250131
